FAERS Safety Report 25414077 (Version 1)
Quarter: 2025Q2

REPORT INFORMATION
  Report Type: Spontaneous
  Country: CA (occurrence: CA)
  Receive Date: 20250609
  Receipt Date: 20250609
  Transmission Date: 20250716
  Serious: Yes (Death)
  Sender: MYLAN
  Company Number: CA-MYLANLABS-2025M1048479

PATIENT
  Age: 36 Year
  Sex: Male

DRUGS (20)
  1. SERTRALINE [Suspect]
     Active Substance: SERTRALINE HYDROCHLORIDE
     Indication: Product used for unknown indication
  2. SERTRALINE [Suspect]
     Active Substance: SERTRALINE HYDROCHLORIDE
     Route: 065
  3. SERTRALINE [Suspect]
     Active Substance: SERTRALINE HYDROCHLORIDE
     Route: 065
  4. SERTRALINE [Suspect]
     Active Substance: SERTRALINE HYDROCHLORIDE
  5. CAFFEINE [Suspect]
     Active Substance: CAFFEINE
     Indication: Product used for unknown indication
  6. CAFFEINE [Suspect]
     Active Substance: CAFFEINE
     Route: 065
  7. CAFFEINE [Suspect]
     Active Substance: CAFFEINE
     Route: 065
  8. CAFFEINE [Suspect]
     Active Substance: CAFFEINE
  9. DICLOFENAC\DICYCLOMINE [Suspect]
     Active Substance: DICLOFENAC\DICYCLOMINE
     Indication: Product used for unknown indication
  10. DICLOFENAC\DICYCLOMINE [Suspect]
     Active Substance: DICLOFENAC\DICYCLOMINE
     Route: 065
  11. DICLOFENAC\DICYCLOMINE [Suspect]
     Active Substance: DICLOFENAC\DICYCLOMINE
     Route: 065
  12. DICLOFENAC\DICYCLOMINE [Suspect]
     Active Substance: DICLOFENAC\DICYCLOMINE
  13. FENTANYL [Suspect]
     Active Substance: FENTANYL
     Indication: Product used for unknown indication
  14. FENTANYL [Suspect]
     Active Substance: FENTANYL
     Route: 065
  15. FENTANYL [Suspect]
     Active Substance: FENTANYL
     Route: 065
  16. FENTANYL [Suspect]
     Active Substance: FENTANYL
  17. NICOTINE [Suspect]
     Active Substance: NICOTINE
     Indication: Product used for unknown indication
  18. NICOTINE [Suspect]
     Active Substance: NICOTINE
     Route: 065
  19. NICOTINE [Suspect]
     Active Substance: NICOTINE
     Route: 065
  20. NICOTINE [Suspect]
     Active Substance: NICOTINE

REACTIONS (2)
  - Overdose [Fatal]
  - Toxicity to various agents [Fatal]
